FAERS Safety Report 8514245-2 (Version None)
Quarter: 2012Q3

REPORT INFORMATION
  Report Type: 
  Country: None (occurrence: None)
  Receive Date: 20120717
  Receipt Date: 20120709
  Transmission Date: 20120928
  Serious: Yes (Other)
  Sender: FDA-Public Use
  Company Number: US-JNJFOC-20120702264

PATIENT
  Age: 62 Year
  Sex: Male

DRUGS (6)
  1. DOXORUBICIN HCL [Suspect]
     Indication: PERIPHERAL T-CELL LYMPHOMA UNSPECIFIED
     Dosage: 8 CYCLES (21 DAYS CYCLE)
     Route: 042
  2. AVASTIN [Suspect]
     Dosage: CYCLE 1-5 (MAINTENANCE)
     Route: 065
  3. AVASTIN [Suspect]
     Indication: PERIPHERAL T-CELL LYMPHOMA UNSPECIFIED
     Dosage: 8 CYCLES (21 DAYS CYCLE)
     Route: 065
  4. VINCRISTINE [Suspect]
     Indication: PERIPHERAL T-CELL LYMPHOMA UNSPECIFIED
     Dosage: 8 CYCLES (21 DAYS CYCLE)
     Route: 065
  5. PREDNISONE [Suspect]
     Indication: PERIPHERAL T-CELL LYMPHOMA UNSPECIFIED
     Dosage: 8 CYCLES (21 DAYS CYCLE)
     Route: 065
  6. CYCLOPHOSPHAMIDE [Suspect]
     Indication: PERIPHERAL T-CELL LYMPHOMA UNSPECIFIED
     Dosage: 8 CYCLES (21 DAYS CYCLE)
     Route: 065

REACTIONS (1)
  - VENTRICULAR TACHYCARDIA [None]
